FAERS Safety Report 13238164 (Version 2)
Quarter: 2017Q1

REPORT INFORMATION
  Report Type: Spontaneous
  Country: PT (occurrence: PT)
  Receive Date: 20170216
  Receipt Date: 20170314
  Transmission Date: 20170428
  Serious: Yes (Other)
  Sender: FDA-Public Use
  Company Number: PT-ACCORD-048188

PATIENT
  Age: 54 Year
  Sex: Female

DRUGS (1)
  1. ETOPOSIDE ACCORD [Suspect]
     Active Substance: ETOPOSIDE
     Indication: UTERINE CANCER
     Dosage: 2ND CYCLE OF 3 DAYS
     Route: 042
     Dates: start: 20170117, end: 20170117

REACTIONS (8)
  - Dyspnoea [Recovered/Resolved]
  - Ocular hyperaemia [Recovered/Resolved]
  - Erythema [Recovered/Resolved]
  - Hypersensitivity [Unknown]
  - Off label use [Unknown]
  - Back pain [Recovered/Resolved]
  - Chest discomfort [Recovered/Resolved]
  - Headache [Recovered/Resolved]

NARRATIVE: CASE EVENT DATE: 20170117
